FAERS Safety Report 10615351 (Version 1)
Quarter: 2014Q4

REPORT INFORMATION
  Report Type: Spontaneous
  Country: US (occurrence: US)
  Receive Date: 20141201
  Receipt Date: 20141201
  Transmission Date: 20150529
  Serious: No
  Sender: FDA-Public Use
  Company Number: US-PFIZER INC-2014323201

PATIENT
  Age: 69 Year
  Sex: Female

DRUGS (5)
  1. NARDIL [Suspect]
     Active Substance: PHENELZINE SULFATE
     Indication: DEPRESSION
     Dosage: UNK
  2. LINACLOTIDE [Suspect]
     Active Substance: LINACLOTIDE
     Dosage: 145 ?G, 1X/DAY
     Route: 048
     Dates: start: 20141002, end: 20141002
  3. XANAX [Concomitant]
     Active Substance: ALPRAZOLAM
     Dosage: 0.5 MG, UNK
  4. NARDIL [Suspect]
     Active Substance: PHENELZINE SULFATE
     Indication: PANIC ATTACK
  5. LEVSIN [Concomitant]
     Active Substance: HYOSCYAMINE SULFATE
     Dosage: 0.125 MG, AS NEEDED

REACTIONS (3)
  - Dizziness [Recovered/Resolved]
  - Nausea [Not Recovered/Not Resolved]
  - Headache [Not Recovered/Not Resolved]

NARRATIVE: CASE EVENT DATE: 20141003
